FAERS Safety Report 11206211 (Version 1)
Quarter: 2015Q2

REPORT INFORMATION
  Report Type: Spontaneous
  Country: GB (occurrence: None)
  Receive Date: 20150618
  Receipt Date: 20150618
  Transmission Date: 20150821
  Serious: No
  Sender: FDA-Public Use
  Company Number: None

PATIENT
  Age: 39 Year
  Sex: Male

DRUGS (2)
  1. MENS ROGAINE EXTRA STRENGTH [Suspect]
     Active Substance: MINOXIDIL
     Indication: PRODUCT USED FOR UNKNOWN INDICATION
     Dosage: AS PER DIRECTIONS
  2. PIRITON [Concomitant]
     Active Substance: CHLORPHENIRAMINE MALEATE

REACTIONS (6)
  - Periorbital disorder [None]
  - Ear swelling [None]
  - Erythema [None]
  - Pruritus [None]
  - Eye swelling [None]
  - Ear pruritus [None]

NARRATIVE: CASE EVENT DATE: 20150614
